FAERS Safety Report 16254047 (Version 1)
Quarter: 2019Q2

REPORT INFORMATION
  Report Type: Spontaneous
  Country: CN (occurrence: CN)
  Receive Date: 20190430
  Receipt Date: 20190430
  Transmission Date: 20190711
  Serious: Yes (Other)
  Sender: FDA-Public Use
  Company Number: PHHY2019CN096298

PATIENT
  Age: 28 Year
  Sex: Male

DRUGS (2)
  1. CARBAMAZEPINE. [Suspect]
     Active Substance: CARBAMAZEPINE
     Indication: EPILEPSY
     Dosage: 100 MG, BID
     Route: 065
  2. VALPROATE SODIUM. [Suspect]
     Active Substance: VALPROATE SODIUM
     Indication: EPILEPSY
     Dosage: UNK
     Route: 065

REACTIONS (10)
  - Epilepsy [Unknown]
  - Tongue discolouration [Unknown]
  - Pulse abnormal [Unknown]
  - Irritability [Unknown]
  - Fatigue [Unknown]
  - Oral discomfort [Unknown]
  - Communication disorder [Unknown]
  - Decreased appetite [Unknown]
  - Intellectual disability [Unknown]
  - Therapeutic response decreased [Unknown]
